FAERS Safety Report 4284910-4 (Version None)
Quarter: 2004Q1

REPORT INFORMATION
  Report Type: 
  Country: None (occurrence: None)
  Receive Date: 20040202
  Receipt Date: 20040121
  Transmission Date: 20041129
  Serious: Yes (Death, Other)
  Sender: FDA-Public Use
  Company Number: 2014666

PATIENT
  Age: 30 Year
  Sex: Male

DRUGS (1)
  1. OXYCONTIN [Suspect]
     Indication: PAIN
     Dosage: ORAL
     Route: 048

REACTIONS (7)
  - DRUG DEPENDENCE [None]
  - FEELING ABNORMAL [None]
  - GUN SHOT WOUND [None]
  - MOOD SWINGS [None]
  - OVERDOSE [None]
  - PAIN [None]
  - SUICIDAL IDEATION [None]
